FAERS Safety Report 14959302 (Version 4)
Quarter: 2018Q4

REPORT INFORMATION
  Report Type: Report from Study
  Country: US (occurrence: US)
  Receive Date: 20180531
  Receipt Date: 20181115
  Transmission Date: 20190204
  Serious: Yes (Other)
  Sender: FDA-Public Use
  Company Number: US-TEVA-2018-US-898381

PATIENT
  Sex: Female

DRUGS (2)
  1. CLARAVIS [Suspect]
     Active Substance: ISOTRETINOIN
     Dosage: 70 MILLIGRAM DAILY; DOSE STRENGTH:20,20+30MG
     Route: 065
     Dates: start: 20171113, end: 20180517
  2. CLARAVIS [Suspect]
     Active Substance: ISOTRETINOIN
     Dosage: 50 MILLIGRAM DAILY; DOSE STRENGTH:20,+30MG
     Route: 065

REACTIONS (1)
  - Unintended pregnancy [Unknown]
